FAERS Safety Report 4542629-6 (Version None)
Quarter: 2004Q4

REPORT INFORMATION
  Report Type: 
  Country: None (occurrence: None)
  Receive Date: 20041230
  Receipt Date: 20020918
  Transmission Date: 20050328
  Serious: Yes (Hospitalization)
  Sender: FDA-Public Use
  Company Number: US-MERCK-0209USA01864

PATIENT
  Age: 63 Year
  Sex: Female
  Weight: 138 kg

DRUGS (15)
  1. VIOXX [Suspect]
     Indication: MONARTHRITIS
     Route: 048
     Dates: start: 20010622, end: 20020101
  2. VIOXX [Suspect]
     Route: 048
     Dates: start: 20020826, end: 20020830
  3. VIOXX [Suspect]
     Indication: ARTHRALGIA
     Route: 048
     Dates: start: 20010622, end: 20020101
  4. VIOXX [Suspect]
     Route: 048
     Dates: start: 20020826, end: 20020830
  5. CELEBREX [Concomitant]
     Route: 065
  6. ATIVAN [Concomitant]
     Route: 065
  7. TALOXA [Concomitant]
     Route: 065
  8. GLUCOPHAGE [Concomitant]
     Route: 065
  9. AVANDIA [Concomitant]
     Route: 065
  10. ZESTRIL [Concomitant]
     Route: 065
  11. NORVASC [Concomitant]
     Route: 065
  12. VOLTAREN [Concomitant]
     Route: 065
     Dates: start: 20010901
  13. DIURIL [Concomitant]
     Route: 048
  14. ELAVIL [Concomitant]
     Route: 048
  15. AMARYL [Concomitant]
     Route: 065

REACTIONS (12)
  - BLOOD PRESSURE INCREASED [None]
  - BLOOD VISCOSITY INCREASED [None]
  - BUNDLE BRANCH BLOCK LEFT [None]
  - ELECTROCARDIOGRAM POOR R-WAVE PROGRESSION [None]
  - ELECTROCARDIOGRAM QT PROLONGED [None]
  - HEART RATE INCREASED [None]
  - LACUNAR INFARCTION [None]
  - LOW DENSITY LIPOPROTEIN INCREASED [None]
  - OEDEMA PERIPHERAL [None]
  - QRS AXIS ABNORMAL [None]
  - TRANSIENT ISCHAEMIC ATTACK [None]
  - VENTRICULAR HYPERTROPHY [None]
